FAERS Safety Report 24292399 (Version 1)
Quarter: 2024Q3

REPORT INFORMATION
  Report Type: Report from Study
  Country: US (occurrence: US)
  Receive Date: 20240906
  Receipt Date: 20240906
  Transmission Date: 20241016
  Serious: Yes (Life-Threatening, Other)
  Sender: MYLAN
  Company Number: US-MYLANLABS-2024M1080477

PATIENT
  Age: 41 Year
  Sex: Female

DRUGS (2)
  1. CLOZAPINE [Suspect]
     Active Substance: CLOZAPINE
     Indication: Schizoaffective disorder bipolar type
     Dosage: 200 MILLIGRAM, QD (ONE TIME A DAY)
     Route: 048
     Dates: start: 20240730
  2. CLOZAPINE [Suspect]
     Active Substance: CLOZAPINE
     Dosage: 2 DOSAGE FORM (400 MILLIGRAM AT BEDTIME)
     Route: 048
     Dates: start: 20240730

REACTIONS (11)
  - Agranulocytosis [Unknown]
  - Seizure [Unknown]
  - Drooling [Unknown]
  - Mean cell haemoglobin concentration increased [Recovered/Resolved]
  - White blood cell count increased [Recovered/Resolved]
  - Neutrophil count decreased [Not Recovered/Not Resolved]
  - Monocyte count increased [Unknown]
  - Somnolence [Unknown]
  - Constipation [Unknown]
  - Dizziness [Unknown]
  - Off label use [Unknown]

NARRATIVE: CASE EVENT DATE: 20240730
